FAERS Safety Report 15688589 (Version 3)
Quarter: 2020Q2

REPORT INFORMATION
  Report Type: Spontaneous
  Country: JP (occurrence: JP)
  Receive Date: 20181205
  Receipt Date: 20200424
  Transmission Date: 20200713
  Serious: Yes (Other)
  Sender: FDA-Public Use
  Company Number: JP-SUN PHARMACEUTICAL INDUSTRIES LTD-2018R1-192747

PATIENT
  Sex: Female
  Weight: .64 kg

DRUGS (6)
  1. METHYLDOPA. [Suspect]
     Active Substance: METHYLDOPA
     Dosage: 100 MILLIGRAM, DAILY
     Route: 064
  2. METHYLDOPA. [Suspect]
     Active Substance: METHYLDOPA
     Indication: HYPERTENSION
     Dosage: 500 MILLIGRAM, DAILY
     Route: 064
  3. APRESOLINE HYDROCHLORIDE [Suspect]
     Active Substance: HYDRALAZINE HYDROCHLORIDE
     Indication: HYPERTENSION
     Dosage: UNK
     Route: 064
  4. METHYLDOPA. [Suspect]
     Active Substance: METHYLDOPA
     Dosage: 750 MILLIGRAM, DAILY
     Route: 064
  5. NICARDIPINE [Suspect]
     Active Substance: NICARDIPINE
     Indication: HYPERTENSION
     Dosage: UNK
     Route: 064
  6. NIFEDIPINE. [Suspect]
     Active Substance: NIFEDIPINE
     Indication: HYPERTENSION
     Dosage: UNK
     Route: 064

REACTIONS (3)
  - Low birth weight baby [Unknown]
  - Foetal exposure timing unspecified [Unknown]
  - Premature baby [Unknown]
